FAERS Safety Report 10442662 (Version 1)
Quarter: 2014Q3

REPORT INFORMATION
  Report Type: Spontaneous
  Country: BR (occurrence: None)
  Receive Date: 20140908
  Receipt Date: 20140908
  Transmission Date: 20150326
  Serious: Yes (Hospitalization)
  Sender: FDA-Public Use
  Company Number: 2014-001987

PATIENT
  Age: 88 Year
  Sex: Female
  Weight: 70 kg

DRUGS (12)
  1. SIMVASTATIN (SIMVASTATIN) [Concomitant]
     Active Substance: SIMVASTATIN
  2. HIGROTON (CHLORTALIDONE) [Concomitant]
  3. THYROID THERAPY [Concomitant]
     Active Substance: UNSPECIFIED INGREDIENT
  4. ACTONEL [Suspect]
     Active Substance: RISEDRONATE SODIUM
     Indication: OSTEOPOROSIS
     Dosage: 150 MG ONCE MONTHLY, ORAL
     Route: 048
  5. LEXAPRO [Concomitant]
     Active Substance: ESCITALOPRAM OXALATE
  6. PRADAXA [Concomitant]
     Active Substance: DABIGATRAN ETEXILATE MESYLATE
  7. ESOMEPRAZOLE (ESOMEPRAZOLE) [Concomitant]
     Active Substance: ESOMEPRAZOLE
  8. CALCIUM CARBONATE/VITAMIN D3 (CALCIUM CARBONATE, COLECALCIFEROL) [Concomitant]
  9. CARDIZEM [Concomitant]
     Active Substance: DILTIAZEM HYDROCHLORIDE
  10. ACTONEL [Suspect]
     Active Substance: RISEDRONATE SODIUM
     Indication: PAIN
     Dosage: 150 MG ONCE MONTHLY, ORAL
     Route: 048
  11. VITAMIN B COMPLEX [Concomitant]
     Active Substance: CYANOCOBALAMIN\DEXPANTHENOL\NIACINAMIDE\PYRIDOXINE HYDROCHLORIDE\RIBOFLAVIN 5^-PHOSPHATE SODIUM\THIAMINE HYDROCHLORIDE\VITAMIN B COMPLEX
  12. CEWIN (ASCORBIC ACID) [Concomitant]

REACTIONS (11)
  - Diarrhoea [None]
  - Tremor [None]
  - Dehydration [None]
  - Somnolence [None]
  - Nausea [None]
  - Dysstasia [None]
  - Laziness [None]
  - Feeling abnormal [None]
  - Dizziness [None]
  - Vomiting [None]
  - Headache [None]

NARRATIVE: CASE EVENT DATE: 201408
